FAERS Safety Report 26178099 (Version 1)
Quarter: 2025Q4

REPORT INFORMATION
  Report Type: Report from Study
  Country: JP (occurrence: JP)
  Receive Date: 20251219
  Receipt Date: 20251219
  Transmission Date: 20260118
  Serious: Yes (Other)
  Sender: Long Grove Pharmaceuticals
  Company Number: JP-Long Grove-000170

PATIENT

DRUGS (1)
  1. METHADONE [Suspect]
     Active Substance: METHADONE HYDROCHLORIDE
     Indication: Pain

REACTIONS (3)
  - Somnolence [Unknown]
  - Delirium [Unknown]
  - Myoclonus [Unknown]
